FAERS Safety Report 25540938 (Version 1)
Quarter: 2025Q3

REPORT INFORMATION
  Report Type: Spontaneous
  Country: JP (occurrence: JP)
  Receive Date: 20250710
  Receipt Date: 20250710
  Transmission Date: 20251021
  Serious: Yes (Hospitalization, Disabling)
  Sender: EISAI
  Company Number: JP-Eisai-202504325_LEN-EC_P_1

PATIENT
  Age: 74 Year
  Sex: Female
  Weight: 43 kg

DRUGS (5)
  1. LENVIMA [Suspect]
     Active Substance: LENVATINIB
     Indication: Endometrial sarcoma recurrent
  2. LENVIMA [Suspect]
     Active Substance: LENVATINIB
     Dates: start: 20250401, end: 20250417
  3. KEYTRUDA [Suspect]
     Active Substance: PEMBROLIZUMAB
     Indication: Endometrial sarcoma recurrent
     Dosage: NUMBER OF DOSES: 6
     Dates: start: 20241030, end: 20250227
  4. LEVOTHYROXINE [Concomitant]
     Active Substance: LEVOTHYROXINE
     Indication: Product used for unknown indication
  5. LEVOTHYROXINE [Concomitant]
     Active Substance: LEVOTHYROXINE

REACTIONS (4)
  - Immune-mediated hypophysitis [Recovered/Resolved]
  - Altered state of consciousness [Recovered/Resolved]
  - Hypothyroidism [Recovered/Resolved]
  - Decreased appetite [Recovering/Resolving]

NARRATIVE: CASE EVENT DATE: 20250101
